FAERS Safety Report 7552200-X (Version None)
Quarter: 2011Q2

REPORT INFORMATION
  Report Type: 
  Country: None (occurrence: None)
  Receive Date: 20110616
  Receipt Date: 20110607
  Transmission Date: 20111010
  Serious: Yes (Other)
  Sender: FDA-Public Use
  Company Number: BR-MERCK-1106BRA00024

PATIENT
  Age: 60 Year
  Sex: Female
  Weight: 53 kg

DRUGS (1)
  1. FOSAMAX [Suspect]
     Indication: CALCIUM DEFICIENCY
     Route: 048
     Dates: start: 20070307, end: 20080101

REACTIONS (5)
  - PAIN IN EXTREMITY [None]
  - OFF LABEL USE [None]
  - LOWER LIMB FRACTURE [None]
  - BONE DISORDER [None]
  - FALL [None]
